FAERS Safety Report 23491859 (Version 2)
Quarter: 2025Q1

REPORT INFORMATION
  Report Type: Report from Study
  Country: US (occurrence: US)
  Receive Date: 20240207
  Receipt Date: 20250115
  Transmission Date: 20250409
  Serious: No
  Sender: HRA PHARMA
  Company Number: US-ORG100014127-2023001062

PATIENT
  Age: 51 Year
  Sex: Female

DRUGS (16)
  1. LYSODREN [Suspect]
     Active Substance: MITOTANE
     Indication: Adrenal gland cancer
     Route: 048
     Dates: start: 20231106
  2. LYSODREN [Suspect]
     Active Substance: MITOTANE
     Indication: Adrenal gland cancer
     Dates: start: 20231028
  3. LYSODREN [Suspect]
     Active Substance: MITOTANE
     Indication: Adrenal gland cancer
     Dosage: 3 TABLETS TWICE DAILY
  4. CORTEF [Concomitant]
     Active Substance: HYDROCORTISONE
     Indication: Product used for unknown indication
  5. ASPIRIN EC TAB 81MG [Concomitant]
     Indication: Product used for unknown indication
  6. hydrocortisone powder [Concomitant]
     Indication: Product used for unknown indication
  7. invokana tab 300mg [Concomitant]
     Indication: Product used for unknown indication
  8. loratadine tab 10mg [Concomitant]
     Indication: Product used for unknown indication
  9. ONDANSETRON [Concomitant]
     Active Substance: ONDANSETRON
     Indication: Nausea
  10. OZEMPIC [Concomitant]
     Active Substance: SEMAGLUTIDE
     Indication: Product used for unknown indication
  11. potassium powder chloride [Concomitant]
     Indication: Product used for unknown indication
  12. ROSUVASTATIN [Concomitant]
     Active Substance: ROSUVASTATIN
     Indication: Product used for unknown indication
  13. TRAZODONE [Concomitant]
     Active Substance: TRAZODONE HYDROCHLORIDE
     Indication: Product used for unknown indication
  14. venlafaxine cap 150mg er [Concomitant]
     Indication: Product used for unknown indication
  15. Vitamin B12 tablet 100mg [Concomitant]
     Indication: Product used for unknown indication
  16. ZOFRAN [Concomitant]
     Active Substance: ONDANSETRON HYDROCHLORIDE
     Indication: Nausea

REACTIONS (6)
  - Constipation [Not Recovered/Not Resolved]
  - Nausea [Unknown]
  - Fatigue [Not Recovered/Not Resolved]
  - Vomiting [Not Recovered/Not Resolved]
  - Dizziness [Not Recovered/Not Resolved]
  - Hypersomnia [Not Recovered/Not Resolved]

NARRATIVE: CASE EVENT DATE: 20231030
